FAERS Safety Report 21639534 (Version 1)
Quarter: 2022Q4

REPORT INFORMATION
  Report Type: Report from Study
  Country: PR (occurrence: PR)
  Receive Date: 20221124
  Receipt Date: 20221124
  Transmission Date: 20230113
  Serious: No
  Sender: FDA-Public Use
  Company Number: PR-ABBVIE-4162620

PATIENT
  Sex: Male
  Weight: 97.975 kg

DRUGS (11)
  1. HUMIRA [Suspect]
     Active Substance: ADALIMUMAB
     Indication: Ankylosing spondylitis
     Dosage: FORM STRENGTH: 40 MG
     Route: 058
     Dates: start: 2019
  2. METFORMIN [Concomitant]
     Active Substance: METFORMIN HYDROCHLORIDE
     Indication: Diabetes mellitus
     Route: 048
     Dates: start: 2021
  3. DOLOGESIC [Concomitant]
     Active Substance: ACETAMINOPHEN\ALCOHOL\PHENYLTOLOXAMINE CITRATE
     Indication: Pain
     Route: 048
     Dates: start: 2021
  4. TOZINAMERAN [Concomitant]
     Active Substance: TOZINAMERAN
     Indication: COVID-19
     Dosage: 2ND DOSE ONCE
     Route: 030
     Dates: start: 20210519, end: 20210519
  5. TOZINAMERAN [Concomitant]
     Active Substance: TOZINAMERAN
     Indication: COVID-19
     Dosage: 1ST DOSE ONCE
     Route: 030
     Dates: start: 20210428, end: 20210428
  6. TOZINAMERAN [Concomitant]
     Active Substance: TOZINAMERAN
     Indication: COVID-19
     Dosage: 3RD DOSE ONCE
     Route: 030
     Dates: start: 20220314, end: 20220314
  7. NORTRIPTYLINE [Concomitant]
     Active Substance: NORTRIPTYLINE
     Indication: Anxiety
     Route: 048
     Dates: start: 2021
  8. LOSARTAN [Concomitant]
     Active Substance: LOSARTAN
     Indication: Hypertension
     Dosage: MORE THAN 3 YEARS
     Route: 048
  9. GABAPENTIN [Concomitant]
     Active Substance: GABAPENTIN
     Indication: Nervous system disorder
     Route: 048
     Dates: start: 2020, end: 2020
  10. GABAPENTIN [Concomitant]
     Active Substance: GABAPENTIN
     Indication: Nervous system disorder
     Route: 048
     Dates: start: 2020
  11. TRAMADOL [Concomitant]
     Active Substance: TRAMADOL
     Indication: Pain
     Dosage: START DATE TEXT: MORE THAN 1 YEAR
     Route: 048

REACTIONS (3)
  - Phobia [Unknown]
  - Chest pain [Recovered/Resolved]
  - Neck pain [Not Recovered/Not Resolved]

NARRATIVE: CASE EVENT DATE: 20220101
